FAERS Safety Report 25219825 (Version 2)
Quarter: 2025Q2

REPORT INFORMATION
  Report Type: Spontaneous
  Country: JP (occurrence: JP)
  Receive Date: 20250421
  Receipt Date: 20250508
  Transmission Date: 20250716
  Serious: Yes (Hospitalization)
  Sender: AMGEN
  Company Number: JP-KYOWAKIRIN-2025KK006198

PATIENT
  Age: 8 Decade
  Sex: Female

DRUGS (3)
  1. CINACALCET HYDROCHLORIDE [Suspect]
     Active Substance: CINACALCET HYDROCHLORIDE
     Indication: Hyperparathyroidism
     Dosage: 25 MG, TID
     Route: 048
     Dates: end: 202502
  2. EVOCALCET [Suspect]
     Active Substance: EVOCALCET
     Indication: Hyperparathyroidism
     Route: 048
     Dates: start: 20250204
  3. EVOCALCET [Suspect]
     Active Substance: EVOCALCET
     Route: 048
     Dates: start: 202503

REACTIONS (3)
  - Illness [Unknown]
  - Blood calcium increased [Unknown]
  - Off label use [Unknown]

NARRATIVE: CASE EVENT DATE: 20250301
